FAERS Safety Report 4583517-9 (Version None)
Quarter: 2005Q1

REPORT INFORMATION
  Report Type: 
  Country: None (occurrence: None)
  Receive Date: 20050211
  Receipt Date: 20050204
  Transmission Date: 20050727
  Serious: Yes (Life-Threatening)
  Sender: FDA-Public Use
  Company Number: 2005AP00840

PATIENT
  Age: 83 Year
  Sex: Female

DRUGS (3)
  1. ATACAND HCT [Suspect]
     Indication: CARDIAC FAILURE CONGESTIVE
     Dosage: 16 MG + 12.5 MG DAILY
     Dates: end: 20040907
  2. FELODIPINE [Concomitant]
  3. LANOXIN [Concomitant]

REACTIONS (2)
  - ANGIONEUROTIC OEDEMA [None]
  - CEREBRAL ARTERY OCCLUSION [None]
